FAERS Safety Report 9113459 (Version 1)
Quarter: 2013Q1

REPORT INFORMATION
  Report Type: Spontaneous
  Country: US (occurrence: US)
  Receive Date: 20130128
  Receipt Date: 20130128
  Transmission Date: 20140127
  Serious: No
  Sender: FDA-Public Use
  Company Number: US-009507513-1301USA007882

PATIENT
  Sex: Female

DRUGS (1)
  1. NUVARING [Suspect]
     Dosage: 3 WEEKS IN, 3 WEEKS IN
     Route: 067

REACTIONS (2)
  - Metrorrhagia [Unknown]
  - Inappropriate schedule of drug administration [Unknown]
